FAERS Safety Report 8356542-X (Version None)
Quarter: 2012Q2

REPORT INFORMATION
  Report Type: 
  Country: None (occurrence: None)
  Receive Date: 20120514
  Receipt Date: 20120507
  Transmission Date: 20120825
  Serious: Yes (Other)
  Sender: FDA-Public Use
  Company Number: PHHY2012BR038379

PATIENT
  Sex: Female

DRUGS (2)
  1. EXFORGE HCT [Suspect]
     Indication: HYPERTENSION
     Dosage: 2 DF,AT A DOSE OF TWO TABLETS A DAY (160 MG VALS ,5 MG AMLO AND 12.5 MG HYDR)
  2. CALCIUM [Concomitant]
     Dosage: UNK

REACTIONS (2)
  - UPPER LIMB FRACTURE [None]
  - OSTEOPOROSIS [None]
